FAERS Safety Report 6388020-1 (Version None)
Quarter: 2009Q4

REPORT INFORMATION
  Report Type: 
  Country: None (occurrence: None)
  Receive Date: 20091005
  Receipt Date: 20090921
  Transmission Date: 20100525
  Serious: Yes (Hospitalization)
  Sender: FDA-Public Use
  Company Number: US-PFIZER INC-2009276401

PATIENT
  Sex: Female
  Weight: 54.422 kg

DRUGS (5)
  1. GEODON [Suspect]
     Indication: BIPOLAR DISORDER
     Dosage: 80 MG, 2X/DAY
     Dates: start: 20081201, end: 20090801
  2. HUMIRA [Concomitant]
     Indication: RHEUMATOID ARTHRITIS
  3. NABUMETONE [Concomitant]
     Indication: RHEUMATOID ARTHRITIS
  4. MINOXIDIL [Concomitant]
     Indication: BLOOD PRESSURE INADEQUATELY CONTROLLED
  5. SYNTHROID [Concomitant]

REACTIONS (5)
  - BLOOD PRESSURE INCREASED [None]
  - CARDIAC DISORDER [None]
  - HEART RATE IRREGULAR [None]
  - LOSS OF CONSCIOUSNESS [None]
  - TREMOR [None]
